FAERS Safety Report 8381845 (Version 5)
Quarter: 2012Q4

REPORT INFORMATION
  Report Type: 
  Country: US (occurrence: US)
  Receive Date: 20120201
  Receipt Date: 20120910
  Transmission Date: 20130627
  Serious: Yes (Other)
  Sender: FDA-Public Use
  Company Number: US-ROCHE-1034492

PATIENT
  Age: 19 Year
  Sex: Female

DRUGS (4)
  1. ACCUTANE [Suspect]
     Indication: ACNE
     Route: 048
     Dates: start: 19991216
  2. ACCUTANE [Suspect]
     Route: 048
  3. TRIPHASIL [Concomitant]
  4. ORTHO TRI CYCLEN [Concomitant]

REACTIONS (7)
  - Inflammatory bowel disease [Unknown]
  - Anxiety [Unknown]
  - Crohn^s disease [Unknown]
  - Anal fissure [Unknown]
  - Depression [Unknown]
  - Xerosis [Unknown]
  - Irritable bowel syndrome [Unknown]
